FAERS Safety Report 8828208 (Version 3)
Quarter: 2012Q4

REPORT INFORMATION
  Report Type: 
  Country: FR (occurrence: FR)
  Receive Date: 20121005
  Receipt Date: 20121203
  Transmission Date: 20130627
  Serious: Yes (Hospitalization, Disabling, Other)
  Sender: FDA-Public Use
  Company Number: FR-ELI_LILLY_AND_COMPANY-FR201210000152

PATIENT
  Age: 67 Year
  Sex: Male
  Weight: 95 kg

DRUGS (5)
  1. CIALIS [Suspect]
     Dosage: UNK, prn
     Route: 048
     Dates: start: 2010
  2. JANUVIA [Concomitant]
  3. AMARYL [Concomitant]
  4. HYZAAR [Concomitant]
  5. DAFALGAN [Concomitant]

REACTIONS (4)
  - Optic ischaemic neuropathy [Recovered/Resolved with Sequelae]
  - Cataract [Unknown]
  - Carotid intima-media thickness increased [Unknown]
  - Aortic arteriosclerosis [Unknown]
